FAERS Safety Report 19528487 (Version 12)
Quarter: 2022Q2

REPORT INFORMATION
  Report Type: Report from Study
  Country: US (occurrence: US)
  Receive Date: 20210713
  Receipt Date: 20220511
  Transmission Date: 20220721
  Serious: Yes (Hospitalization, Other)
  Sender: FDA-Public Use
  Company Number: US-BOEHRINGERINGELHEIM-2020-MR-044110

PATIENT
  Age: 69 Year
  Sex: Female

DRUGS (4)
  1. OFEV [Suspect]
     Active Substance: NINTEDANIB
     Indication: Idiopathic pulmonary fibrosis
     Route: 048
     Dates: start: 20200803, end: 20210512
  2. OFEV [Suspect]
     Active Substance: NINTEDANIB
     Indication: Interstitial lung disease
     Route: 048
     Dates: start: 20210513, end: 202201
  3. OFEV [Suspect]
     Active Substance: NINTEDANIB
     Dosage: WITH FOOD
     Route: 048
     Dates: start: 2022
  4. LUCENTIS [Concomitant]
     Active Substance: RANIBIZUMAB
     Indication: Product used for unknown indication

REACTIONS (28)
  - Intestinal obstruction [Recovered/Resolved]
  - Post procedural infection [Not Recovered/Not Resolved]
  - Confusional state [Recovered/Resolved]
  - Dehydration [Recovered/Resolved]
  - Oxygen saturation decreased [Recovered/Resolved]
  - Gastric disorder [Not Recovered/Not Resolved]
  - Ileus [Not Recovered/Not Resolved]
  - Pneumonia [Recovered/Resolved]
  - Chromaturia [Not Recovered/Not Resolved]
  - Aphonia [Recovered/Resolved]
  - Aspiration [Recovered/Resolved]
  - Vomiting [Unknown]
  - Respiratory tract infection [Unknown]
  - Nausea [Recovering/Resolving]
  - Abdominal discomfort [Not Recovered/Not Resolved]
  - Abdominal distension [Not Recovered/Not Resolved]
  - Dyspnoea [Not Recovered/Not Resolved]
  - Abdominal pain upper [Not Recovered/Not Resolved]
  - Illness [Unknown]
  - Muscle spasms [Not Recovered/Not Resolved]
  - Diarrhoea [Recovering/Resolving]
  - Peripheral swelling [Unknown]
  - Fatigue [Unknown]
  - Bronchitis [Unknown]
  - Impaired gastric emptying [Unknown]
  - Cough [Unknown]
  - Pain in extremity [Unknown]
  - Flatulence [Unknown]

NARRATIVE: CASE EVENT DATE: 20200803
